FAERS Safety Report 19294911 (Version 2)
Quarter: 2021Q3

REPORT INFORMATION
  Report Type: Spontaneous
  Country: IT (occurrence: IT)
  Receive Date: 20210524
  Receipt Date: 20210929
  Transmission Date: 20211014
  Serious: Yes (Other)
  Sender: FDA-Public Use
  Company Number: IT-AUROBINDO-AUR-APL-2021-020570

PATIENT
  Age: 71 Year
  Sex: Male
  Weight: 172 kg

DRUGS (7)
  1. SITAGLIPTIN/METFORMIN HYDROCHLORIDE [Suspect]
     Active Substance: METFORMIN HYDROCHLORIDE\SITAGLIPTIN
     Indication: HYPOGLYCAEMIA
     Dosage: UNK, ONCE A DAY
     Route: 065
  2. ENALAPRIL TABLETS [Suspect]
     Active Substance: ENALAPRIL
     Dosage: 20 MILLIGRAM, ONCE A DAY
     Route: 065
  3. METFORMIN [Suspect]
     Active Substance: METFORMIN HYDROCHLORIDE
     Indication: TYPE 2 DIABETES MELLITUS
     Dosage: UNK, ONCE A DAY
     Route: 065
  4. ENALAPRIL TABLETS [Suspect]
     Active Substance: ENALAPRIL
     Indication: HYPERTENSION
     Dosage: 1 UNK, ONCE A DAY
     Route: 065
  5. SIMVASTATIN TABLET [Suspect]
     Active Substance: SIMVASTATIN
     Dosage: 10 MILLIGRAM, ONCE A DAY
     Route: 065
  6. METFORMIN [Suspect]
     Active Substance: METFORMIN HYDROCHLORIDE
     Dosage: 1000 MILLIGRAM, TWO TIMES A DAY
     Route: 065
  7. SIMVASTATIN TABLET [Suspect]
     Active Substance: SIMVASTATIN
     Indication: PRODUCT USED FOR UNKNOWN INDICATION
     Dosage: UNK, ONCE A DAY
     Route: 065

REACTIONS (7)
  - Hepatomegaly [Unknown]
  - Hepatic enzyme decreased [Unknown]
  - Glycosylated haemoglobin increased [Unknown]
  - Haemoglobin abnormal [Unknown]
  - Weight decreased [Unknown]
  - Hepatic steatosis [Unknown]
  - Non-alcoholic steatohepatitis [Unknown]
